FAERS Safety Report 4883493-5 (Version None)
Quarter: 2006Q1

REPORT INFORMATION
  Report Type: 
  Country: None (occurrence: None)
  Receive Date: 20060118
  Receipt Date: 20060103
  Transmission Date: 20060701
  Serious: Yes (Hospitalization)
  Sender: FDA-Public Use
  Company Number: DE-MERCK-0601DEU00020

PATIENT
  Age: 55 Year
  Sex: Female

DRUGS (3)
  1. SINGULAIR [Suspect]
     Indication: ASTHMA
     Route: 048
  2. IPRATROPIUM BROMIDE [Concomitant]
     Route: 065
  3. BUDESONIDE AND FORMOTEROL FUMARATE [Concomitant]
     Route: 065

REACTIONS (1)
  - HYPEREOSINOPHILIC SYNDROME [None]
